FAERS Safety Report 8973885 (Version 3)
Quarter: 2013Q1

REPORT INFORMATION
  Report Type: Spontaneous
  Country: CA (occurrence: CA)
  Receive Date: 20121218
  Receipt Date: 20130114
  Transmission Date: 20140127
  Serious: Yes (Other)
  Sender: FDA-Public Use
  Company Number: CA-GLAXOSMITHKLINE-A1004945A

PATIENT
  Sex: Female

DRUGS (3)
  1. ADVAIR [Suspect]
     Indication: PRODUCT USED FOR UNKNOWN INDICATION
     Dosage: 1PUFF TWICE PER DAY
     Route: 055
  2. VENTOLIN [Concomitant]
  3. SPIRIVA [Concomitant]

REACTIONS (7)
  - Choking [Unknown]
  - Ill-defined disorder [Unknown]
  - Product quality issue [Unknown]
  - Drug ineffective [Unknown]
  - Malaise [Unknown]
  - Cough [Unknown]
  - Overdose [Unknown]
